FAERS Safety Report 12318299 (Version 1)
Quarter: 2016Q2

REPORT INFORMATION
  Report Type: Report from Study
  Country: PT (occurrence: PT)
  Receive Date: 20160429
  Receipt Date: 20160429
  Transmission Date: 20160815
  Serious: Yes (Hospitalization)
  Sender: FDA-Public Use
  Company Number: PT-BIOGEN-2016BI00229564

PATIENT
  Age: 23 Year
  Sex: Female

DRUGS (1)
  1. AVONEX [Suspect]
     Active Substance: INTERFERON BETA-1A
     Indication: RELAPSING-REMITTING MULTIPLE SCLEROSIS
     Route: 030
     Dates: start: 201302

REACTIONS (3)
  - Bone marrow disorder [Unknown]
  - Multiple sclerosis relapse [Not Recovered/Not Resolved]
  - Injection site haematoma [Unknown]

NARRATIVE: CASE EVENT DATE: 20151225
